FAERS Safety Report 21919253 (Version 1)
Quarter: 2023Q1

REPORT INFORMATION
  Report Type: Spontaneous
  Country: US (occurrence: None)
  Receive Date: 20230126
  Receipt Date: 20230126
  Transmission Date: 20230417
  Serious: Yes (Hospitalization, Disabling)
  Sender: FDA-Public Use
  Company Number: None

PATIENT
  Age: 81 Year
  Sex: Male

DRUGS (7)
  1. CAPECITABINE [Suspect]
     Active Substance: CAPECITABINE
     Indication: Colorectal cancer
     Dosage: OTHER FREQUENCY : 14 D, 7D OFF;?
     Route: 048
     Dates: start: 20220902
  2. ATORVASTATIN [Concomitant]
     Active Substance: ATORVASTATIN
  3. COLACE [Concomitant]
     Active Substance: DOCUSATE SODIUM
  4. DILTIAZEM [Concomitant]
     Active Substance: DILTIAZEM
  5. MIRALAX 3350 NF POWDER [Concomitant]
  6. TAMSULOSIN [Concomitant]
     Active Substance: TAMSULOSIN
  7. VITAMIN D3 [Concomitant]
     Active Substance: CHOLECALCIFEROL

REACTIONS (1)
  - Intestinal obstruction [None]

NARRATIVE: CASE EVENT DATE: 20230119
